FAERS Safety Report 16007842 (Version 2)
Quarter: 2019Q2

REPORT INFORMATION
  Report Type: Spontaneous
  Country: US (occurrence: US)
  Receive Date: 20190226
  Receipt Date: 20190628
  Transmission Date: 20190711
  Serious: Yes (Other)
  Sender: FDA-Public Use
  Company Number: US-PFIZER INC-2019081045

PATIENT
  Age: 57 Year
  Sex: Female
  Weight: 88 kg

DRUGS (18)
  1. LYRICA [Suspect]
     Active Substance: PREGABALIN
     Indication: VASCULAR GRAFT
  2. VICTOZA [Concomitant]
     Active Substance: LIRAGLUTIDE
     Dosage: UNK, DAILY (1.8)
  3. LYRICA [Suspect]
     Active Substance: PREGABALIN
     Indication: PHANTOM LIMB SYNDROME
  4. PANTOPRAZOLE [Concomitant]
     Active Substance: PANTOPRAZOLE
     Dosage: UNK
     Dates: start: 2019
  5. METFORMIN HCL [Concomitant]
     Active Substance: METFORMIN HYDROCHLORIDE
     Dosage: 500 MG, UNK (500MGX2)
  6. INSULIN [Concomitant]
     Active Substance: INSULIN NOS
     Dosage: UNK
  7. LYRICA [Suspect]
     Active Substance: PREGABALIN
     Indication: NEUROPATHY PERIPHERAL
     Dosage: 150 MG, 2X/DAY
     Route: 048
     Dates: start: 2016
  8. LYRICA [Suspect]
     Active Substance: PREGABALIN
     Indication: PAIN
  9. CYMBALTA [Concomitant]
     Active Substance: DULOXETINE HYDROCHLORIDE
     Dosage: UNK
     Dates: start: 2009
  10. XARELTO [Concomitant]
     Active Substance: RIVAROXABAN
     Dosage: UNK
     Dates: start: 2017
  11. TRESIBA [Concomitant]
     Active Substance: INSULIN DEGLUDEC
     Dosage: UNK, DAILY (100X2)
  12. ROSUVASTATIN CALCIUM. [Concomitant]
     Active Substance: ROSUVASTATIN CALCIUM
     Dosage: UNK
     Dates: start: 2018
  13. METOPROLOL. [Concomitant]
     Active Substance: METOPROLOL
     Dosage: UNK
     Dates: start: 2015
  14. TIZANIDINE HCL [Concomitant]
     Active Substance: TIZANIDINE HYDROCHLORIDE
     Dosage: 4 MG, 2X/DAY
  15. LOSARTAN POTASSIUM. [Concomitant]
     Active Substance: LOSARTAN POTASSIUM
     Dosage: UNK
     Dates: start: 2015
  16. NOVA [ETHINYLESTRADIOL;LEVONORGESTREL] [Concomitant]
     Dosage: 10 G, AS NEEDED
  17. LYRICA [Suspect]
     Active Substance: PREGABALIN
     Indication: MUSCLE SPASMS
  18. LYRICA [Suspect]
     Active Substance: PREGABALIN
     Indication: AMPUTEE

REACTIONS (2)
  - Diabetes mellitus [Not Recovered/Not Resolved]
  - Therapeutic product effect incomplete [Not Recovered/Not Resolved]

NARRATIVE: CASE EVENT DATE: 2016
